FAERS Safety Report 9272197 (Version 4)
Quarter: 2013Q3

REPORT INFORMATION
  Report Type: Spontaneous
  Country: DE (occurrence: DE)
  Receive Date: 20130506
  Receipt Date: 20130709
  Transmission Date: 20140515
  Serious: Yes (Hospitalization)
  Sender: FDA-Public Use
  Company Number: DE-CELGENEUS-062-21880-13043928

PATIENT
  Age: 49 Year
  Sex: Male
  Weight: 77 kg

DRUGS (7)
  1. REVLIMID [Suspect]
     Indication: PLASMA CELL MYELOMA
     Dosage: 10 MILLIGRAM
     Route: 048
     Dates: start: 20080901, end: 20091101
  2. COTRIM FORTE [Concomitant]
     Indication: INFECTION
     Route: 065
  3. FOLIC ACID [Concomitant]
     Indication: FOLATE DEFICIENCY
     Dosage: 5 MILLIGRAM
     Route: 065
  4. ACETYLSALICYLIC ACID [Concomitant]
     Indication: THROMBOSIS PROPHYLAXIS
     Dosage: 100 MILLIGRAM
     Route: 065
  5. TEGRETOL [Concomitant]
     Indication: CONVULSION
     Dosage: 57.1429 MILLIGRAM
     Route: 065
  6. VALACICLOVIR [Concomitant]
     Indication: HERPES VIRUS INFECTION
     Dosage: 3 GRAM
     Route: 065
  7. PAMIDRONATE [Concomitant]
     Indication: OSTEOLYSIS
     Dosage: .6667 MILLIGRAM
     Route: 065

REACTIONS (1)
  - Oropharyngeal squamous cell carcinoma [Recovered/Resolved]
